FAERS Safety Report 11139844 (Version 1)
Quarter: 2015Q2

REPORT INFORMATION
  Report Type: Spontaneous
  Country: US (occurrence: US)
  Receive Date: 20150527
  Receipt Date: 20150527
  Transmission Date: 20150821
  Serious: Yes (Hospitalization)
  Sender: FDA-Public Use
  Company Number: US-BAYER-2015-245290

PATIENT
  Sex: Male

DRUGS (1)
  1. XOFIGO [Suspect]
     Active Substance: RADIUM RA-223 DICHLORIDE
     Dosage: HAD COMPLETED FOUR INFECTIONS/INFUSIONS

REACTIONS (7)
  - Aphasia [None]
  - Hypertension [None]
  - Asthenia [None]
  - Pain [None]
  - Decreased appetite [None]
  - Aphasia [None]
  - Urinary tract infection [None]

NARRATIVE: CASE EVENT DATE: 20150416
